FAERS Safety Report 10413276 (Version 3)
Quarter: 2015Q3

REPORT INFORMATION
  Report Type: Report from Study
  Country: CA (occurrence: CA)
  Receive Date: 20140827
  Receipt Date: 20150722
  Transmission Date: 20151125
  Serious: Yes (Other)
  Sender: FDA-Public Use
  Company Number: CA-SA-2014SA110735

PATIENT
  Age: 51 Year
  Sex: Female
  Weight: 118 kg

DRUGS (5)
  1. AUBAGIO [Suspect]
     Active Substance: TERIFLUNOMIDE
     Indication: RELAPSING-REMITTING MULTIPLE SCLEROSIS
     Route: 048
     Dates: start: 20140121
  2. SYMBICORT [Concomitant]
     Active Substance: BUDESONIDE\FORMOTEROL FUMARATE DIHYDRATE
  3. TEGRETOL [Concomitant]
     Active Substance: CARBAMAZEPINE
     Indication: TRIGEMINAL NEURALGIA
     Route: 048
     Dates: start: 2011
  4. TYLENOL [Concomitant]
     Active Substance: ACETAMINOPHEN
     Indication: PAIN
     Route: 048
  5. VITAMIN D [Concomitant]
     Active Substance: CHOLECALCIFEROL
     Indication: NUTRITIONAL SUPPLEMENTATION
     Route: 048

REACTIONS (14)
  - Blood iron decreased [Recovering/Resolving]
  - Sleep apnoea syndrome [Recovering/Resolving]
  - Paraesthesia [Unknown]
  - Dyspepsia [Not Recovered/Not Resolved]
  - Feeding disorder [Unknown]
  - Pain in jaw [Recovered/Resolved]
  - Somnolence [Unknown]
  - Back pain [Recovering/Resolving]
  - Pneumonia [Recovered/Resolved]
  - Cholelithiasis [Recovered/Resolved]
  - Arthralgia [Recovering/Resolving]
  - Hypoaesthesia [Unknown]
  - Cholecystitis [Recovered/Resolved]
  - Fall [Unknown]

NARRATIVE: CASE EVENT DATE: 20140715
